FAERS Safety Report 15819591 (Version 2)
Quarter: 2019Q1

REPORT INFORMATION
  Report Type: Report from Study
  Country: None (occurrence: IT)
  Receive Date: 20190114
  Receipt Date: 20190131
  Transmission Date: 20190417
  Serious: Yes (Other)
  Sender: FDA-Public Use
  Company Number: IT-ABBVIE-19K-083-2620405-00

PATIENT
  Sex: Male

DRUGS (1)
  1. HUMIRA [Suspect]
     Active Substance: ADALIMUMAB
     Indication: ANKYLOSING SPONDYLITIS
     Route: 058
     Dates: start: 20180503

REACTIONS (1)
  - Pulmonary mass [Not Recovered/Not Resolved]
